FAERS Safety Report 16586903 (Version 3)
Quarter: 2020Q3

REPORT INFORMATION
  Report Type: Report from Study
  Country: US (occurrence: US)
  Receive Date: 20190717
  Receipt Date: 20200717
  Transmission Date: 20201102
  Serious: No
  Sender: FDA-Public Use
  Company Number: US-SA-2019SA187508

PATIENT

DRUGS (3)
  1. DUPILUMAB [Suspect]
     Active Substance: DUPILUMAB
     Indication: ECZEMA
     Dosage: 300 MG, Q15D
     Route: 058
     Dates: start: 20190516
  2. DUPILUMAB [Suspect]
     Active Substance: DUPILUMAB
     Indication: DERMATITIS ATOPIC
     Dosage: 600 MG, 1X
     Route: 058
  3. DUPILUMAB [Suspect]
     Active Substance: DUPILUMAB
     Dosage: 300 MG, QOW
     Route: 058
     Dates: end: 20200621

REACTIONS (11)
  - Rash [Unknown]
  - Erythema [Unknown]
  - Rash pruritic [Not Recovered/Not Resolved]
  - Dyspnoea [Unknown]
  - Product use issue [Unknown]
  - Rash [Unknown]
  - Eczema [Not Recovered/Not Resolved]
  - Product dose omission issue [Unknown]
  - Ocular hyperaemia [Unknown]
  - Eye irritation [Unknown]
  - Dry eye [Unknown]

NARRATIVE: CASE EVENT DATE: 2019
